FAERS Safety Report 7135128-9 (Version None)
Quarter: 2010Q4

REPORT INFORMATION
  Report Type: 
  Country: None (occurrence: None)
  Receive Date: 20101203
  Receipt Date: 20101122
  Transmission Date: 20110411
  Serious: Yes (Life-Threatening, Hospitalization)
  Sender: FDA-Public Use
  Company Number: GB-KINGPHARMUSA00001-K201001447

PATIENT
  Age: 38 Year
  Sex: Male

DRUGS (5)
  1. SEPTRA [Suspect]
     Indication: PNEUMOCYSTIS JIROVECI INFECTION
     Dosage: 1920 MG, QID
     Route: 048
  2. SEPTRA [Suspect]
     Indication: ANTIBIOTIC PROPHYLAXIS
     Dosage: 960 MG, QD
     Route: 048
  3. SEPTRA [Suspect]
     Dosage: 3840 MG, BID
     Route: 048
  4. PRIMAQUINE [Suspect]
     Indication: PNEUMOCYSTIS JIROVECI INFECTION
     Dosage: UNK
  5. PRIMAQUINE [Suspect]
     Indication: ANTIBIOTIC PROPHYLAXIS

REACTIONS (14)
  - APPARENT DEATH [None]
  - CONJUNCTIVAL HYPERAEMIA [None]
  - CREPITATIONS [None]
  - CYANOSIS [None]
  - HYPOTENSION [None]
  - INTERSTITIAL LUNG DISEASE [None]
  - NAUSEA [None]
  - PYREXIA [None]
  - RASH ERYTHEMATOUS [None]
  - RESPIRATORY FAILURE [None]
  - SEPTIC SHOCK [None]
  - TACHYCARDIA [None]
  - VENOUS PRESSURE JUGULAR DECREASED [None]
  - VOMITING [None]
